FAERS Safety Report 10091079 (Version 2)
Quarter: 2014Q2

REPORT INFORMATION
  Report Type: Spontaneous
  Country: US (occurrence: US)
  Receive Date: 20140421
  Receipt Date: 20140421
  Transmission Date: 20141212
  Serious: No
  Sender: FDA-Public Use
  Company Number: US-GILEAD-2012-0059674

PATIENT
  Age: 72 Year
  Sex: Female

DRUGS (3)
  1. LETAIRIS [Suspect]
     Indication: PULMONARY HYPERTENSION
     Dosage: 10 MG, QD
     Route: 048
     Dates: start: 20120405, end: 20120801
  2. LETAIRIS [Suspect]
     Indication: HEART DISEASE CONGENITAL
     Dosage: 10 UNK, UNK
     Route: 048
     Dates: start: 201208
  3. TRACLEER [Suspect]

REACTIONS (6)
  - Throat irritation [Recovered/Resolved]
  - Cough [Not Recovered/Not Resolved]
  - Rash pruritic [Recovered/Resolved]
  - Abdominal pain [Not Recovered/Not Resolved]
  - Nausea [Not Recovered/Not Resolved]
  - Peripheral swelling [Not Recovered/Not Resolved]
